FAERS Safety Report 10524607 (Version 1)
Quarter: 2014Q4

REPORT INFORMATION
  Report Type: Spontaneous
  Country: HU (occurrence: HU)
  Receive Date: 20141017
  Receipt Date: 20141017
  Transmission Date: 20150528
  Serious: Yes (Other)
  Sender: FDA-Public Use
  Company Number: HU-WATSON-2014-22119

PATIENT

DRUGS (4)
  1. LEVOFLOXACIN (UNKNOWN) [Suspect]
     Active Substance: LEVOFLOXACIN
     Indication: PLEURISY
     Route: 065
  2. AKTIL DUO [Concomitant]
     Indication: PYREXIA
  3. IBUPROFEN. [Concomitant]
     Active Substance: IBUPROFEN
     Indication: PRODUCT USED FOR UNKNOWN INDICATION
     Route: 065
  4. AKTIL DUO [Concomitant]
     Indication: COUGH
     Route: 065

REACTIONS (3)
  - Choking [Recovered/Resolved]
  - Musculoskeletal chest pain [Unknown]
  - Productive cough [Not Recovered/Not Resolved]
